FAERS Safety Report 19437711 (Version 2)
Quarter: 2021Q3

REPORT INFORMATION
  Report Type: Spontaneous
  Country: IN (occurrence: IN)
  Receive Date: 20210618
  Receipt Date: 20210702
  Transmission Date: 20211014
  Serious: No
  Sender: FDA-Public Use
  Company Number: IN-LUPIN LIMITED-2021-09510

PATIENT
  Age: 66 Year
  Sex: Male
  Weight: 59 kg

DRUGS (3)
  1. R?CINEX TABS [Suspect]
     Active Substance: ISONIAZID\RIFAMPIN
     Dosage: 01 DOSAGE FORM, QD
     Route: 065
  2. R?CINEX TABS [Suspect]
     Active Substance: ISONIAZID\RIFAMPIN
     Indication: TUBERCULOSIS
     Dosage: 04 DOSAGE FORM, QD
     Route: 065
     Dates: start: 2020
  3. COMBUTOL TAB UNCOATED 1 G [Suspect]
     Active Substance: ETHAMBUTOL HYDROCHLORIDE
     Indication: TUBERCULOSIS
     Dosage: 01 DOSAGE FORM, QD
     Route: 065
     Dates: start: 2020

REACTIONS (3)
  - Pruritus [Recovered/Resolved]
  - Decreased appetite [Recovered/Resolved]
  - Dizziness [Recovered/Resolved]

NARRATIVE: CASE EVENT DATE: 2020
